FAERS Safety Report 9868429 (Version 3)
Quarter: 2014Q1

REPORT INFORMATION
  Report Type: Report from Study
  Country: US (occurrence: US)
  Receive Date: 20140204
  Receipt Date: 20140313
  Transmission Date: 20141002
  Serious: Yes (Hospitalization)
  Sender: FDA-Public Use
  Company Number: US-ACTELION-A-NJ2014-94313

PATIENT
  Age: 58 Year
  Sex: Male

DRUGS (3)
  1. VELETRI [Suspect]
     Indication: PULMONARY ARTERIAL HYPERTENSION
     Dosage: 14 NG/KG, PER MIN
     Route: 042
     Dates: start: 20120713
  2. LETAIRIS [Concomitant]
  3. COUMADIN [Concomitant]

REACTIONS (2)
  - Bronchitis [Recovering/Resolving]
  - Influenza [Recovering/Resolving]
